FAERS Safety Report 6316260-6 (Version None)
Quarter: 2009Q3

REPORT INFORMATION
  Report Type: 
  Country: None (occurrence: None)
  Receive Date: 20090819
  Receipt Date: 20090819
  Transmission Date: 20100115
  Serious: Yes (Death)
  Sender: FDA-Public Use
  Company Number: None

PATIENT
  Sex: Male

DRUGS (1)
  1. GEODON [Suspect]
     Indication: SCHIZOPHRENIA
     Dosage: 180 MG -3 CAPSULES- EVERY NIGHT AT BED PO (DURATION: AT LEAST ONE YEAR)
     Route: 048

REACTIONS (1)
  - ARTERIOSCLEROSIS CORONARY ARTERY [None]
